FAERS Safety Report 15307357 (Version 3)
Quarter: 2019Q1

REPORT INFORMATION
  Report Type: Report from Study
  Country: CA (occurrence: CA)
  Receive Date: 20180822
  Receipt Date: 20190325
  Transmission Date: 20190417
  Serious: Yes (Other)
  Sender: FDA-Public Use
  Company Number: CA-PFIZER INC-2018332639

PATIENT
  Sex: Female

DRUGS (2)
  1. METHOTREXATE SODIUM. [Suspect]
     Active Substance: METHOTREXATE SODIUM
     Indication: GESTATIONAL TROPHOBLASTIC TUMOUR
     Dosage: 30 MG, CYCLIC (DAILY FOR 5 DAYS (DAY 1 TO 5) WITH EACH CYCLE IS 14 DAYS IN DURATION)
     Route: 042
  2. DACTINOMYCIN [Suspect]
     Active Substance: DACTINOMYCIN
     Indication: GESTATIONAL TROPHOBLASTIC TUMOUR
     Dosage: 0.5 MG, CYCLIC (DAILY FOR 5 DAYS (DAY 1 TO 5) WITH EACH CYCLE IS 14 DAYS IN DURATION)
     Route: 042

REACTIONS (1)
  - Gastrointestinal toxicity [Unknown]
